FAERS Safety Report 9187505 (Version 1)
Quarter: 2013Q1

REPORT INFORMATION
  Report Type: Spontaneous
  Country: US (occurrence: US)
  Receive Date: 20130325
  Receipt Date: 20130325
  Transmission Date: 20140127
  Serious: Yes (Hospitalization)
  Sender: FDA-Public Use
  Company Number: US-B.I. PHARMACEUTICALS,INC./RIDGEFIELD-2013-BI-07528BP

PATIENT
  Age: 77 None
  Sex: Female
  Weight: 73 kg

DRUGS (21)
  1. SPIRIVA [Suspect]
     Indication: CHRONIC OBSTRUCTIVE PULMONARY DISEASE
     Dosage: 18 MCG
     Route: 055
     Dates: start: 2009
  2. SPIRIVA [Suspect]
     Indication: EMPHYSEMA
     Route: 048
     Dates: start: 20130318, end: 20130318
  3. PRADAXA [Suspect]
     Indication: CARDIAC DISORDER
     Dosage: 300 MG
     Route: 048
     Dates: start: 201211
  4. PROAIR [Concomitant]
     Indication: ASTHMA
     Route: 055
  5. SYMBICORT [Concomitant]
     Indication: CHRONIC OBSTRUCTIVE PULMONARY DISEASE
  6. FUROSEMIDE [Concomitant]
     Indication: CARDIAC DISORDER
     Dosage: 20 MG
     Route: 048
  7. METOPROLOL [Concomitant]
     Indication: HYPERTENSION
     Dosage: 50 MG
     Route: 048
  8. AMLODIPINE [Concomitant]
     Indication: CARDIAC DISORDER
     Dosage: 10 MG
     Route: 048
  9. FIORCET [Concomitant]
     Indication: HEADACHE
  10. DOCUSATE [Concomitant]
     Dosage: 120 MG
     Route: 048
  11. DIGOXIN [Concomitant]
     Indication: CARDIAC DISORDER
     Dosage: 0.125 MG
     Route: 048
  12. REMERON [Concomitant]
  13. TESSALON [Concomitant]
     Dosage: 200 MG
     Route: 048
  14. SIMVASTATIN [Concomitant]
     Indication: BLOOD CHOLESTEROL INCREASED
     Dosage: 40 MG
     Route: 048
  15. BISACODYL [Concomitant]
     Dosage: 5 MG
     Route: 048
  16. DEXILANT [Concomitant]
     Dosage: 60 MG
     Route: 048
  17. GLUCOVANCE [Concomitant]
     Indication: TYPE 2 DIABETES MELLITUS
  18. ATIVAN [Concomitant]
     Dosage: 3 MG
     Route: 048
  19. SINGULAIR [Concomitant]
     Indication: ASTHMA
     Dosage: 10 MG
     Route: 048
  20. LOVAZA [Concomitant]
     Indication: BLOOD CHOLESTEROL INCREASED
     Dosage: 4000 MG
     Route: 048
  21. MULTIVITAMIN [Concomitant]
     Route: 048

REACTIONS (2)
  - Cerebrovascular accident [Recovered/Resolved with Sequelae]
  - Incorrect route of drug administration [Recovered/Resolved]
